FAERS Safety Report 7114158-7 (Version None)
Quarter: 2010Q4

REPORT INFORMATION
  Report Type: 
  Country: None (occurrence: None)
  Receive Date: 20101119
  Receipt Date: 20101115
  Transmission Date: 20110411
  Serious: Yes (Hospitalization, Other)
  Sender: FDA-Public Use
  Company Number: CL-PFIZER INC-2010105775

PATIENT
  Age: 47 Year
  Sex: Female

DRUGS (2)
  1. CELEBRA [Suspect]
     Indication: MUSCLE RUPTURE
     Dosage: 200 MG, 2X/DAY
     Route: 048
     Dates: start: 20100408
  2. TRAMADOL HYDROCHLORIDE AND ACETAMINOPHEN [Concomitant]
     Indication: MUSCLE RUPTURE
     Dosage: UNK
     Route: 048

REACTIONS (5)
  - HEPATITIS [None]
  - IMMUNE SYSTEM DISORDER [None]
  - IMMUNODEFICIENCY [None]
  - LUPUS-LIKE SYNDROME [None]
  - SYSTEMIC INFLAMMATORY RESPONSE SYNDROME [None]
